FAERS Safety Report 13897765 (Version 1)
Quarter: 2017Q3

REPORT INFORMATION
  Report Type: Report from Study
  Country: US (occurrence: US)
  Receive Date: 20170823
  Receipt Date: 20170823
  Transmission Date: 20171127
  Serious: Yes (Hospitalization)
  Sender: FDA-Public Use
  Company Number: US-EISAI MEDICAL RESEARCH-EC-2017-026829

PATIENT
  Age: 59 Year
  Sex: Male
  Weight: 92.53 kg

DRUGS (12)
  1. LORAZEPAM. [Concomitant]
     Active Substance: LORAZEPAM
  2. LEVOTHYROXINE. [Concomitant]
     Active Substance: LEVOTHYROXINE
  3. LIDOCAINE PATCH [Concomitant]
     Active Substance: LIDOCAINE
  4. LENVIMA [Suspect]
     Active Substance: LENVATINIB
     Route: 048
     Dates: start: 20170426, end: 2017
  5. CEFUROXIME. [Concomitant]
     Active Substance: CEFUROXIME
  6. LENVIMA [Suspect]
     Active Substance: LENVATINIB
     Route: 048
     Dates: start: 2017
  7. AFINITOR [Concomitant]
     Active Substance: EVEROLIMUS
  8. TEMAZEPAM. [Concomitant]
     Active Substance: TEMAZEPAM
  9. LASIX [Concomitant]
     Active Substance: FUROSEMIDE
  10. ZYPREXA [Concomitant]
     Active Substance: OLANZAPINE
  11. LENVIMA [Suspect]
     Active Substance: LENVATINIB
     Indication: RENAL CELL CARCINOMA
     Route: 048
     Dates: start: 20170407, end: 20170425
  12. ATIVAN [Concomitant]
     Active Substance: LORAZEPAM

REACTIONS (15)
  - Diarrhoea [Unknown]
  - Hypertension [Unknown]
  - Blister [Not Recovered/Not Resolved]
  - Nail injury [Unknown]
  - Vomiting [Unknown]
  - Cough [Not Recovered/Not Resolved]
  - Pain in extremity [Unknown]
  - Decreased appetite [Unknown]
  - Rash [Not Recovered/Not Resolved]
  - Peripheral swelling [Unknown]
  - Hypersomnia [Unknown]
  - Asthenia [Not Recovered/Not Resolved]
  - Fatigue [Unknown]
  - Dizziness [Unknown]
  - Fall [Unknown]

NARRATIVE: CASE EVENT DATE: 2017
